FAERS Safety Report 8606349-0 (Version None)
Quarter: 2012Q3

REPORT INFORMATION
  Report Type: 
  Country: None (occurrence: None)
  Receive Date: 20120820
  Receipt Date: 20120816
  Transmission Date: 20120928
  Serious: Yes (Hospitalization)
  Sender: FDA-Public Use
  Company Number: CH-ROCHE-1103121

PATIENT
  Age: 8 Month
  Sex: Female
  Weight: 5 kg

DRUGS (7)
  1. ENOXAPARIN SODIUM [Suspect]
     Indication: PRODUCT USED FOR UNKNOWN INDICATION
     Route: 058
     Dates: start: 20120601
  2. CLONAZEPAM [Suspect]
     Indication: PRODUCT USED FOR UNKNOWN INDICATION
     Route: 048
  3. FLOXACILLIN SODIUM [Suspect]
     Indication: STAPHYLOCOCCAL INFECTION
     Route: 042
     Dates: start: 20120611, end: 20120626
  4. VALPROATE SODIUM [Suspect]
     Indication: EPILEPSY
     Route: 048
     Dates: start: 20120101
  5. GENTAMICIN SULFATE [Suspect]
     Indication: STAPHYLOCOCCAL INFECTION
     Route: 042
     Dates: start: 20120611, end: 20120615
  6. MOTILIUM [Suspect]
     Indication: PRODUCT USED FOR UNKNOWN INDICATION
  7. AMOXICILLIN AND CLAVULANATE POTASSIUM [Suspect]
     Indication: STAPHYLOCOCCAL INFECTION
     Route: 042
     Dates: start: 20120608, end: 20120611

REACTIONS (1)
  - NEUTROPENIA [None]
